FAERS Safety Report 19061583 (Version 3)
Quarter: 2021Q3

REPORT INFORMATION
  Report Type: Report from Study
  Country: CA (occurrence: CA)
  Receive Date: 20210326
  Receipt Date: 20210706
  Transmission Date: 20211014
  Serious: Yes (Hospitalization)
  Sender: FDA-Public Use
  Company Number: PHHY2017CA115644

PATIENT
  Age: 83 Year
  Sex: Male

DRUGS (3)
  1. SANDOSTATIN LAR DEPOT [Suspect]
     Active Substance: OCTREOTIDE ACETATE
     Indication: CARCINOID SYNDROME
     Dosage: 30 MG, QMO
     Route: 030
     Dates: start: 20170601
  2. SANDOSTATIN LAR DEPOT [Suspect]
     Active Substance: OCTREOTIDE ACETATE
  3. SANDOSTATIN LAR DEPOT [Suspect]
     Active Substance: OCTREOTIDE ACETATE
     Indication: CARCINOID TUMOUR
     Dosage: 30 MG, Q4W
     Route: 030
     Dates: start: 20180418

REACTIONS (16)
  - Fall [Unknown]
  - Pain [Recovering/Resolving]
  - Gastroenteritis viral [Unknown]
  - Pain in extremity [Recovered/Resolved]
  - Confusional state [Unknown]
  - Arthralgia [Recovered/Resolved]
  - Gastrointestinal infection [Recovering/Resolving]
  - Disorientation [Unknown]
  - Injection site pain [Unknown]
  - Heart rate increased [Unknown]
  - Malaise [Unknown]
  - Joint injury [Unknown]
  - Injection site swelling [Unknown]
  - Dyspepsia [Recovering/Resolving]
  - Abdominal discomfort [Unknown]
  - Abdominal pain upper [Not Recovered/Not Resolved]

NARRATIVE: CASE EVENT DATE: 20170802
